FAERS Safety Report 4657005-5 (Version None)
Quarter: 2005Q2

REPORT INFORMATION
  Report Type: 
  Country: None (occurrence: None)
  Receive Date: 20050509
  Receipt Date: 20050412
  Transmission Date: 20051028
  Serious: Yes (Hospitalization, Other)
  Sender: FDA-Public Use
  Company Number: US-MERCK-0504USA01769

PATIENT
  Age: 67 Year
  Sex: Male

DRUGS (6)
  1. VYTORIN [Suspect]
     Indication: HYPERCHOLESTEROLAEMIA
     Route: 048
     Dates: start: 20050301, end: 20050301
  2. VYTORIN [Suspect]
     Route: 048
     Dates: start: 20050408
  3. VYTORIN [Suspect]
     Indication: BLOOD TRIGLYCERIDES INCREASED
     Route: 048
     Dates: start: 20050301, end: 20050301
  4. VYTORIN [Suspect]
     Route: 048
     Dates: start: 20050408
  5. BENICAR [Concomitant]
     Route: 065
  6. CIALIS [Concomitant]
     Route: 065

REACTIONS (1)
  - ANGINA PECTORIS [None]
